FAERS Safety Report 10023765 (Version 1)
Quarter: 2014Q1

REPORT INFORMATION
  Report Type: Spontaneous
  Country: PT (occurrence: PT)
  Receive Date: 20140320
  Receipt Date: 20140320
  Transmission Date: 20141002
  Serious: Yes (Other)
  Sender: FDA-Public Use
  Company Number: PT-MYLANLABS-2014S1005417

PATIENT
  Age: 45 Year
  Sex: Male

DRUGS (5)
  1. VANCOMYCIN [Suspect]
     Indication: STAPHYLOCOCCAL INFECTION
     Dosage: 3-W COURSE PRESCRIBED
     Route: 065
  2. MEROPENEM [Suspect]
     Indication: IMPLANT SITE ABSCESS
     Route: 065
  3. LINEZOLID [Concomitant]
     Indication: STAPHYLOCOCCAL INFECTION
     Route: 065
  4. DOPAMINE [Concomitant]
     Indication: SHOCK
     Route: 065
  5. PREDNISOLONE [Concomitant]
     Indication: SHOCK
     Route: 065

REACTIONS (5)
  - Thrombocytopenia [Unknown]
  - Leukopenia [Unknown]
  - Rash generalised [Unknown]
  - Pruritus [Unknown]
  - Drug hypersensitivity [Unknown]
